FAERS Safety Report 5280552-2 (Version None)
Quarter: 2007Q1

REPORT INFORMATION
  Report Type: 
  Country: None (occurrence: None)
  Receive Date: 20070329
  Receipt Date: 20070319
  Transmission Date: 20070707
  Serious: Yes (Hospitalization)
  Sender: FDA-Public Use
  Company Number: 2007CG00453

PATIENT
  Age: 75 Year
  Sex: Female

DRUGS (8)
  1. NEXIUM [Suspect]
     Route: 048
     Dates: start: 20040101, end: 20070221
  2. DI ANTALVIC [Suspect]
     Route: 048
     Dates: end: 20070221
  3. KARDEGIC [Suspect]
     Route: 048
     Dates: start: 20040101, end: 20070221
  4. ZOCOR [Suspect]
     Route: 048
     Dates: start: 20040101, end: 20070221
  5. LEVOTHYROXINE SODIUM [Concomitant]
  6. LASIX [Concomitant]
  7. VITAMIN B1 AND B6 [Concomitant]
  8. COZAAR [Concomitant]

REACTIONS (1)
  - HAEMOLYTIC ANAEMIA [None]
